FAERS Safety Report 18029103 (Version 8)
Quarter: 2021Q2

REPORT INFORMATION
  Report Type: Report from Study
  Country: ES (occurrence: ES)
  Receive Date: 20200715
  Receipt Date: 20210527
  Transmission Date: 20210717
  Serious: Yes (Death, Life-Threatening)
  Sender: FDA-Public Use
  Company Number: ES-EISAI MEDICAL RESEARCH-EC-2020-077481

PATIENT
  Age: 69 Year
  Sex: Female
  Weight: 70.7 kg

DRUGS (14)
  1. FLUMIL [Concomitant]
     Active Substance: ACETYLCYSTEINE
     Dates: start: 20200305
  2. BROMAZEPAM [Concomitant]
     Active Substance: BROMAZEPAM
     Dates: start: 20191104
  3. NEOBRUFEN [Concomitant]
     Active Substance: IBUPROFEN
     Dates: start: 20170602
  4. IBANDRONIC ACID. [Concomitant]
     Active Substance: IBANDRONIC ACID
     Dates: start: 20191111
  5. ATROVENT [Concomitant]
     Active Substance: IPRATROPIUM BROMIDE
     Dates: start: 20180927
  6. EBASTINE [Concomitant]
     Active Substance: EBASTINE
     Dates: start: 20180724
  7. PEMBROLIZUMAB. [Suspect]
     Active Substance: PEMBROLIZUMAB
     Route: 041
     Dates: start: 20200623, end: 20200623
  8. PARACETAMOL [Concomitant]
     Active Substance: ACETAMINOPHEN
     Dates: start: 20190819
  9. SERETIDE [Concomitant]
     Active Substance: FLUTICASONE PROPIONATE\SALMETEROL XINAFOATE
     Dates: start: 20170707
  10. LENVATINIB [Suspect]
     Active Substance: LENVATINIB
     Indication: NON-SMALL CELL LUNG CANCER METASTATIC
     Route: 048
     Dates: start: 20200109, end: 20200711
  11. OMEPRAZOLE. [Concomitant]
     Active Substance: OMEPRAZOLE
     Dates: start: 20191025
  12. BOREA [Concomitant]
     Active Substance: MEGESTROL ACETATE
     Dates: start: 20191219
  13. PEMBROLIZUMAB. [Suspect]
     Active Substance: PEMBROLIZUMAB
     Indication: NON-SMALL CELL LUNG CANCER METASTATIC
     Route: 041
     Dates: start: 20200109, end: 20200603
  14. EUTHYROX [Concomitant]
     Active Substance: LEVOTHYROXINE SODIUM
     Dates: start: 20200312

REACTIONS (1)
  - Haemoptysis [Fatal]

NARRATIVE: CASE EVENT DATE: 20200711
